FAERS Safety Report 13365261 (Version 1)
Quarter: 2017Q1

REPORT INFORMATION
  Report Type: Spontaneous
  Country: US (occurrence: US)
  Receive Date: 20170323
  Receipt Date: 20170323
  Transmission Date: 20170429
  Serious: No
  Sender: FDA-Public Use
  Company Number: US-ROCHE-1418214

PATIENT
  Sex: Female

DRUGS (1)
  1. XOLAIR [Suspect]
     Active Substance: OMALIZUMAB
     Indication: ASTHMA
     Route: 065

REACTIONS (6)
  - Pulmonary congestion [Unknown]
  - Cough [Unknown]
  - Sinus congestion [Unknown]
  - Pyrexia [Unknown]
  - Pain [Unknown]
  - Upper respiratory tract infection [Unknown]
